FAERS Safety Report 7682410-2 (Version None)
Quarter: 2011Q3

REPORT INFORMATION
  Report Type: 
  Country: None (occurrence: None)
  Receive Date: 20110815
  Receipt Date: 20110804
  Transmission Date: 20111222
  Serious: Yes (Hospitalization, Other)
  Sender: FDA-Public Use
  Company Number: IL-NOVOPROD-333210

PATIENT

DRUGS (3)
  1. LEVEMIR [Suspect]
     Indication: TYPE 2 DIABETES MELLITUS
     Dosage: 14-16 IU
     Dates: end: 20110804
  2. ACTEMRA [Concomitant]
  3. METHOTREXATE [Concomitant]

REACTIONS (4)
  - EYE SWELLING [None]
  - WOUND INFECTION [None]
  - WOUND [None]
  - RASH MACULO-PAPULAR [None]
